FAERS Safety Report 4283207-6 (Version None)
Quarter: 2004Q1

REPORT INFORMATION
  Report Type: 
  Country: None (occurrence: None)
  Receive Date: 20040129
  Receipt Date: 20040112
  Transmission Date: 20041129
  Serious: Yes (Hospitalization)
  Sender: FDA-Public Use
  Company Number: 2004IC000015

PATIENT
  Sex: Female

DRUGS (4)
  1. MESTINON [Suspect]
     Indication: MYASTHENIC SYNDROME
     Dosage: ORAL
     Route: 048
     Dates: end: 20030902
  2. AZATHIOPRINE [Suspect]
     Indication: MYASTHENIC SYNDROME
     Dosage: 150 MG; DAILY
     Dates: end: 20030902
  3. MYTELASE [Suspect]
     Indication: MYASTHENIC SYNDROME
     Dosage: 90 MG, DAILY
     Dates: end: 20030902
  4. INSULINE (GENERIC UNKNOWN) [Suspect]
     Indication: DIABETES MELLITUS
     Dates: end: 20030902

REACTIONS (5)
  - ABORTION INDUCED [None]
  - COMPLICATIONS OF MATERNAL EXPOSURE TO THERAPEUTIC DRUGS [None]
  - FOLATE DEFICIENCY [None]
  - MATERNAL DRUGS AFFECTING FOETUS [None]
  - PLACENTAL DISORDER [None]
